FAERS Safety Report 9685415 (Version 1)
Quarter: 2013Q4

REPORT INFORMATION
  Report Type: Report from Study
  Country: US (occurrence: US)
  Receive Date: 20131113
  Receipt Date: 20131113
  Transmission Date: 20140711
  Serious: Yes (Hospitalization)
  Sender: FDA-Public Use
  Company Number: US-JNJFOC-20131102602

PATIENT
  Age: 48 Year
  Sex: Female
  Weight: 70.31 kg

DRUGS (11)
  1. SIMPONI [Suspect]
     Indication: RHEUMATOID ARTHRITIS
     Route: 058
     Dates: start: 201310
  2. INSULIN [Suspect]
     Indication: BLOOD GLUCOSE INCREASED
     Route: 065
  3. FOLIC ACID [Concomitant]
     Route: 065
  4. METHOTREXATE [Concomitant]
     Route: 065
  5. GABAPENTIN [Concomitant]
     Route: 065
  6. LOSARTAN POTASSIUM [Concomitant]
     Route: 065
  7. SIMVASTATIN [Concomitant]
     Route: 065
  8. TRAZODONE [Concomitant]
     Route: 065
  9. CYMBALTA [Concomitant]
     Route: 065
  10. OMEPRAZOLE [Concomitant]
     Route: 065
  11. PRENATAL VITAMIN [Concomitant]
     Route: 065

REACTIONS (5)
  - Blood glucose increased [Recovering/Resolving]
  - Fall [Recovered/Resolved]
  - Back injury [Recovered/Resolved]
  - Loss of consciousness [Recovered/Resolved]
  - Blood glucose decreased [Unknown]
